FAERS Safety Report 4753422-3 (Version None)
Quarter: 2005Q3

REPORT INFORMATION
  Report Type: 
  Country: None (occurrence: None)
  Receive Date: 20050824
  Receipt Date: 20050811
  Transmission Date: 20060218
  Serious: Yes (Hospitalization)
  Sender: FDA-Public Use
  Company Number: TPG2005A00249

PATIENT
  Age: 48 Year
  Sex: Male

DRUGS (8)
  1. ACTOS [Suspect]
     Indication: DIABETES MELLITUS NON-INSULIN-DEPENDENT
     Dosage: PER ORAL
     Route: 048
     Dates: start: 20050301, end: 20050615
  2. METODURA (METOPROLOL TARTRATE) [Concomitant]
  3. SIMVASTATIN [Concomitant]
  4. LISINOPRIL [Concomitant]
  5. NATRILIX (INDAPAMIDE) [Concomitant]
  6. AMARYL [Concomitant]
  7. LANITOP (METILDIGOXIN) [Concomitant]
  8. ASS RATIOPHARM (ACETYLSALICYLIC ACID) [Concomitant]

REACTIONS (11)
  - ABDOMINAL PAIN UPPER [None]
  - BLOOD GLUCOSE INCREASED [None]
  - CARDIAC FAILURE [None]
  - CHEST DISCOMFORT [None]
  - GASTRITIS [None]
  - HEART RATE INCREASED [None]
  - HYPERHIDROSIS [None]
  - HYPERLIPIDAEMIA [None]
  - HYPERTENSIVE HEART DISEASE [None]
  - HYPERTRIGLYCERIDAEMIA [None]
  - VENTRICULAR HYPERTROPHY [None]
